FAERS Safety Report 5564506-4 (Version None)
Quarter: 2007Q4

REPORT INFORMATION
  Report Type: 
  Country: None (occurrence: None)
  Receive Date: 20071218
  Receipt Date: 20071203
  Transmission Date: 20080405
  Serious: Yes (Hospitalization)
  Sender: FDA-Public Use
  Company Number: JP-ELI_LILLY_AND_COMPANY-JP200712000439

PATIENT
  Sex: Male

DRUGS (8)
  1. ENZASTAURIN (LY317615) [Suspect]
     Indication: NON-SMALL CELL LUNG CANCER
     Dosage: 1125 MG, UNK
     Route: 048
     Dates: start: 20071121
  2. ENZASTAURIN (LY317615) [Suspect]
     Dosage: 500 MG, DAILY (1/D)
     Route: 048
     Dates: start: 20071122, end: 20071203
  3. PEMETREXED [Suspect]
     Indication: NON-SMALL CELL LUNG CANCER
     Dosage: 500 MG/M2, OTHER
     Route: 042
     Dates: start: 20071128
  4. AMLODIN [Concomitant]
     Dates: start: 20071118
  5. LIPITOR [Concomitant]
     Dates: start: 20071118
  6. CLARITIN [Concomitant]
     Dates: start: 20071118
  7. MYSER [Concomitant]
  8. KERATINAMIN [Concomitant]

REACTIONS (1)
  - HEPATIC FUNCTION ABNORMAL [None]
